FAERS Safety Report 12544069 (Version 1)
Quarter: 2016Q3

REPORT INFORMATION
  Report Type: Spontaneous
  Country: US (occurrence: None)
  Receive Date: 20160708
  Receipt Date: 20160708
  Transmission Date: 20161109
  Serious: Yes (Other)
  Sender: FDA-Public Use
  Company Number: None

PATIENT
  Age: 53 Year
  Sex: Female

DRUGS (29)
  1. PAROXETINE. [Concomitant]
     Active Substance: PAROXETINE
  2. PREDNISONE. [Concomitant]
     Active Substance: PREDNISONE
  3. GUAIFENESIN. [Concomitant]
     Active Substance: GUAIFENESIN
  4. NORCO [Concomitant]
     Active Substance: ACETAMINOPHEN\HYDROCODONE BITARTRATE
  5. LEVEMIR [Concomitant]
     Active Substance: INSULIN DETEMIR
  6. ELIQUIS [Concomitant]
     Active Substance: APIXABAN
  7. DIGOXIN. [Concomitant]
     Active Substance: DIGOXIN
  8. AFRIN [Concomitant]
     Active Substance: OXYMETAZOLINE
  9. ALBUTEROL. [Concomitant]
     Active Substance: ALBUTEROL
  10. DILTIAZEM. [Concomitant]
     Active Substance: DILTIAZEM
  11. CAPSAICIN. [Concomitant]
     Active Substance: CAPSAICIN
  12. LIDOCAINE. [Concomitant]
     Active Substance: LIDOCAINE
  13. NOVOLOG [Concomitant]
     Active Substance: INSULIN ASPART
  14. BUSPIRONE [Concomitant]
     Active Substance: BUSPIRONE HYDROCHLORIDE
  15. FAMOTIDINE. [Concomitant]
     Active Substance: FAMOTIDINE
  16. LIDOCAINE. [Concomitant]
     Active Substance: LIDOCAINE
  17. FORTEO [Suspect]
     Active Substance: TERIPARATIDE
     Indication: OSTEOPOROSIS
     Route: 058
     Dates: start: 20151031
  18. HALOPERIDOL. [Concomitant]
     Active Substance: HALOPERIDOL
  19. ATORVASTATIN [Concomitant]
     Active Substance: ATORVASTATIN
  20. POTASSIUM [Concomitant]
     Active Substance: POTASSIUM
  21. AZITHROMYCIN ANHYDROUS. [Concomitant]
     Active Substance: AZITHROMYCIN ANHYDROUS
  22. NITROSTAT [Concomitant]
     Active Substance: NITROGLYCERIN
  23. SYMBICORT [Concomitant]
     Active Substance: BUDESONIDE\FORMOTEROL FUMARATE DIHYDRATE
  24. TORSEMIDE. [Concomitant]
     Active Substance: TORSEMIDE
  25. BUPROPION. [Concomitant]
     Active Substance: BUPROPION
  26. LACTULOSE. [Concomitant]
     Active Substance: LACTULOSE
  27. MAGNESIUM OXIDE. [Concomitant]
     Active Substance: MAGNESIUM OXIDE
  28. METOLAZONE. [Concomitant]
     Active Substance: METOLAZONE
  29. MIRALAX [Concomitant]
     Active Substance: POLYETHYLENE GLYCOL 3350

REACTIONS (1)
  - Transient ischaemic attack [None]

NARRATIVE: CASE EVENT DATE: 20160616
